FAERS Safety Report 9837367 (Version 1)
Quarter: 2014Q1

REPORT INFORMATION
  Report Type: Spontaneous
  Country: US (occurrence: US)
  Receive Date: 20140123
  Receipt Date: 20140123
  Transmission Date: 20141002
  Serious: No
  Sender: FDA-Public Use
  Company Number: US-PFIZER INC-2014019218

PATIENT
  Age: 64 Year
  Sex: Female
  Weight: 94.33 kg

DRUGS (6)
  1. LYRICA [Suspect]
     Indication: FIBROMYALGIA
     Dosage: 75 MG, 2X/DAY
     Route: 048
     Dates: start: 20131217
  2. LYRICA [Suspect]
     Indication: ARTHRITIS
  3. LYRICA [Suspect]
     Indication: ARTHRALGIA
  4. LYRICA [Suspect]
     Indication: MIGRAINE
  5. CYMBALTA [Concomitant]
     Dosage: UNK
  6. HYDROCHLOROTHIAZIDE [Concomitant]
     Indication: BLOOD PRESSURE ABNORMAL
     Dosage: UNK

REACTIONS (9)
  - Off label use [Unknown]
  - Therapeutic response unexpected [Unknown]
  - Drug effect delayed [Unknown]
  - Insomnia [Unknown]
  - Euphoric mood [Unknown]
  - Abnormal behaviour [Unknown]
  - Pain [Unknown]
  - Headache [Unknown]
  - Pain in extremity [Unknown]
